FAERS Safety Report 6725166-X (Version None)
Quarter: 2010Q2

REPORT INFORMATION
  Report Type: 
  Country: None (occurrence: None)
  Receive Date: 20100513
  Receipt Date: 20100513
  Transmission Date: 20101027
  Serious: Yes (Disabling, Other)
  Sender: FDA-Public Use
  Company Number: None

PATIENT
  Sex: Female
  Weight: 50 kg

DRUGS (7)
  1. PERCOCET [Suspect]
     Indication: TENDON RUPTURE
     Dosage: 2.5/325 SPLIT IN 1/2 2 TO 3 X'S A DAY ORAL
     Route: 048
     Dates: start: 20090226, end: 20100218
  2. PERCOCET [Suspect]
     Indication: TENDON RUPTURE
     Dosage: 2.5/325 SPLIT IN 1/2 2 TO 3 X'S A DAY ORAL
     Route: 048
     Dates: start: 20100218
  3. ROLL-A-BOUT (A MOBLE DEVICE TO SUPPORT RIGHT LEG WHEN I COULD NOT WEIG [Concomitant]
  4. EMPI (A PORTABLE TENS UNIT) [Concomitant]
  5. PHYSICAL THERAPY (NON ACTIVE, ONLY ALLOWED TO HAVE ULTRA SOUND, TENS) [Concomitant]
  6. ACCUPUNCTURE [Concomitant]
  7. THERAPUTIC MASSAGE [Concomitant]

REACTIONS (8)
  - ARTHRALGIA [None]
  - DIZZINESS [None]
  - HEADACHE [None]
  - INCORRECT DOSE ADMINISTERED [None]
  - INJECTION SITE INFECTION [None]
  - NAUSEA [None]
  - OSTEOMYELITIS [None]
  - PAIN IN EXTREMITY [None]
